FAERS Safety Report 6832541-1 (Version None)
Quarter: 2010Q3

REPORT INFORMATION
  Report Type: 
  Country: None (occurrence: None)
  Receive Date: 20100712
  Receipt Date: 20070314
  Transmission Date: 20110219
  Serious: No
  Sender: FDA-Public Use
  Company Number: US-PFIZER INC-2007021082

PATIENT
  Sex: Female
  Weight: 90.72 kg

DRUGS (12)
  1. CHANTIX [Suspect]
     Indication: SMOKING CESSATION THERAPY
     Route: 048
     Dates: start: 20070125, end: 20070201
  2. PLETAL [Concomitant]
  3. PLAVIX [Concomitant]
  4. FUROSEMIDE [Concomitant]
  5. ISOSORBIDE [Concomitant]
  6. PROTONIX [Concomitant]
  7. METOPROLOL [Concomitant]
  8. ALL OTHER THERAPEUTIC PRODUCTS [Concomitant]
  9. ACETYLSALICYLIC ACID [Concomitant]
  10. BENAZEPRIL HYDROCHLORIDE [Concomitant]
  11. HYDROCHLOROTHIAZIDE [Concomitant]
  12. ZOCOR [Concomitant]

REACTIONS (1)
  - MALAISE [None]
